FAERS Safety Report 9722741 (Version 1)
Quarter: 2013Q4

REPORT INFORMATION
  Report Type: Spontaneous
  Country: US (occurrence: US)
  Receive Date: 20131202
  Receipt Date: 20131202
  Transmission Date: 20140711
  Serious: No
  Sender: FDA-Public Use
  Company Number: US-PFIZER INC-2013340429

PATIENT
  Age: 71 Year
  Sex: Female

DRUGS (6)
  1. PRISTIQ [Suspect]
     Dosage: 100 MG, 1X/DAY
  2. PRISTIQ [Suspect]
     Dosage: 50 MG, UNK
  3. ATIVAN [Suspect]
     Dosage: UNK
  4. PRILOSEC [Suspect]
     Dosage: UNK
  5. SYNTHROID [Suspect]
     Dosage: UNK
  6. PENICILLIN [Suspect]
     Dosage: UNK

REACTIONS (1)
  - Drug hypersensitivity [Unknown]
